FAERS Safety Report 9742060 (Version 2)
Quarter: 2013Q4

REPORT INFORMATION
  Report Type: Spontaneous
  Country: US (occurrence: US)
  Receive Date: 20131210
  Receipt Date: 20131210
  Transmission Date: 20140711
  Serious: Yes (Hospitalization)
  Sender: FDA-Public Use
  Company Number: US-BANPHARM-20131916

PATIENT
  Age: 52 Year
  Sex: Male
  Weight: 136.08 kg

DRUGS (1)
  1. LOPERAMIDE HCL CAPSULES, 2 MG [Suspect]
     Indication: DIARRHOEA
     Dates: start: 201311

REACTIONS (1)
  - Rectal haemorrhage [Not Recovered/Not Resolved]
